FAERS Safety Report 24266619 (Version 2)
Quarter: 2024Q3

REPORT INFORMATION
  Report Type: Spontaneous
  Country: CO (occurrence: CO)
  Receive Date: 20240830
  Receipt Date: 20240924
  Transmission Date: 20241017
  Serious: Yes (Hospitalization, Other)
  Sender: REGENERON
  Company Number: CO-SA-2024SA250970

PATIENT
  Age: 65 Year
  Sex: Female

DRUGS (1)
  1. PRALUENT [Suspect]
     Active Substance: ALIROCUMAB
     Indication: Hypercholesterolaemia
     Dosage: 150 MG, QOW
     Route: 058
     Dates: start: 2023, end: 202408

REACTIONS (3)
  - Transient ischaemic attack [Recovering/Resolving]
  - Cardio-respiratory arrest [Unknown]
  - Headache [Unknown]

NARRATIVE: CASE EVENT DATE: 20240801
